FAERS Safety Report 18183560 (Version 1)
Quarter: 2020Q3

REPORT INFORMATION
  Report Type: Spontaneous
  Country: FR (occurrence: FR)
  Receive Date: 20200822
  Receipt Date: 20200822
  Transmission Date: 20201103
  Serious: Yes (Hospitalization)
  Sender: FDA-Public Use
  Company Number: NVSC2020FR230628

PATIENT
  Age: 66 Year
  Sex: Male

DRUGS (2)
  1. ATORVASTATIN [Suspect]
     Active Substance: ATORVASTATIN
     Indication: PROPHYLAXIS
     Dosage: 80 MG, UNKNOWN
     Route: 048
     Dates: start: 20200708
  2. XENETIX [Suspect]
     Active Substance: IOBITRIDOL
     Indication: ANGIOCARDIOGRAM
     Dosage: 1 DF, UNKNOWN
     Route: 042
     Dates: start: 20200707

REACTIONS (2)
  - Eosinophilia [Not Recovered/Not Resolved]
  - Toxic skin eruption [Recovered/Resolved]

NARRATIVE: CASE EVENT DATE: 20200712
